FAERS Safety Report 4860096-X (Version None)
Quarter: 2005Q4

REPORT INFORMATION
  Report Type: 
  Country: None (occurrence: None)
  Receive Date: 20051219
  Receipt Date: 20050902
  Transmission Date: 20060501
  Serious: Yes (Hospitalization, Disabling)
  Sender: FDA-Public Use
  Company Number: US-MERCK-0509USA00698

PATIENT
  Age: 49 Year
  Sex: Male
  Weight: 100 kg

DRUGS (11)
  1. VIOXX [Suspect]
     Indication: MONARTHRITIS
     Route: 048
     Dates: start: 20021021, end: 20040101
  2. PENICILLIN 356 [Concomitant]
     Route: 065
  3. IBUPROFEN [Concomitant]
     Route: 065
  4. FLEXEN (NAPROXEN) [Concomitant]
     Route: 065
     Dates: start: 20001201
  5. VIAGRA [Concomitant]
     Route: 065
  6. OXYCODONE [Concomitant]
     Route: 065
     Dates: start: 20020101, end: 20020101
  7. ZYBAN [Concomitant]
     Route: 065
  8. TUSSI-ORGANIDIN DM [Concomitant]
     Route: 065
  9. TYLENOL [Concomitant]
     Route: 065
     Dates: start: 20040901, end: 20041201
  10. ALEVE [Concomitant]
     Route: 065
     Dates: start: 20040901
  11. [THERAPY UNSPECIFIED] [Concomitant]
     Route: 065

REACTIONS (20)
  - AORTIC VALVE SCLEROSIS [None]
  - ARTHROPATHY [None]
  - BLOOD TRIGLYCERIDES INCREASED [None]
  - CARDIAC FAILURE CONGESTIVE [None]
  - CHEST PAIN [None]
  - CORONARY ARTERY OCCLUSION [None]
  - CORONARY ARTERY STENOSIS [None]
  - DIASTOLIC DYSFUNCTION [None]
  - DILATATION ATRIAL [None]
  - DILATATION VENTRICULAR [None]
  - HYPERLIPIDAEMIA [None]
  - HYPERTENSION [None]
  - INTERSTITIAL LUNG DISEASE [None]
  - INTRACARDIAC THROMBUS [None]
  - KNEE OPERATION [None]
  - METABOLIC SYNDROME [None]
  - MITRAL VALVE CALCIFICATION [None]
  - MYOCARDIAL INFARCTION [None]
  - PLATELET COUNT DECREASED [None]
  - PNEUMONIA [None]
